FAERS Safety Report 15138102 (Version 7)
Quarter: 2018Q4

REPORT INFORMATION
  Report Type: Report from Study
  Country: DE (occurrence: DE)
  Receive Date: 20180713
  Receipt Date: 20181228
  Transmission Date: 20190204
  Serious: Yes (Death, Disabling, Congenital Anomaly, Other)
  Sender: FDA-Public Use
  Company Number: DE-CONCORDIA PHARMACEUTICALS INC.-E2B_00013599

PATIENT
  Sex: Female
  Weight: .06 kg

DRUGS (28)
  1. BUSCO PANTOPRAZOLE [Suspect]
     Active Substance: PANTOPRAZOLE SODIUM
     Indication: FOETAL EXPOSURE DURING PREGNANCY
     Route: 064
  2. TORASEMIDE [Suspect]
     Active Substance: TORSEMIDE
     Indication: FOETAL EXPOSURE DURING PREGNANCY
     Dosage: FROM GESTATIONAL WEEK 0-14
     Route: 064
  3. TORASEMIDE [Suspect]
     Active Substance: TORSEMIDE
     Route: 064
  4. HEPARIN [Suspect]
     Active Substance: HEPARIN SODIUM
     Indication: FOETAL EXPOSURE DURING PREGNANCY
     Route: 064
  5. NICOTINE. [Suspect]
     Active Substance: NICOTINE
     Indication: FOETAL EXPOSURE DURING PREGNANCY
     Dosage: FROM GESTATIONAL WEEK 0-14
     Route: 064
  6. PREDNISOLONE TABLET [Suspect]
     Active Substance: PREDNISOLONE
     Indication: FOETAL EXPOSURE DURING PREGNANCY
     Dosage: FROM GESTATIONAL WEEK 0-14
     Route: 064
  7. ALISKIREN [Suspect]
     Active Substance: ALISKIREN
     Indication: FOETAL EXPOSURE DURING PREGNANCY
     Route: 064
  8. ASPIRIN. [Suspect]
     Active Substance: ASPIRIN
     Route: 064
  9. RITUXIMAB. [Suspect]
     Active Substance: RITUXIMAB
     Route: 064
  10. HYDROXYCHLOROQUINE [Suspect]
     Active Substance: HYDROXYCHLOROQUINE
     Indication: FOETAL EXPOSURE DURING PREGNANCY
     Route: 064
  11. HYDROXYCHLOROQUINE [Suspect]
     Active Substance: HYDROXYCHLOROQUINE
     Route: 064
  12. ASPIRIN. [Suspect]
     Active Substance: ASPIRIN
     Indication: FOETAL EXPOSURE DURING PREGNANCY
     Route: 064
  13. PANTOPRAZOLE SODIUM. [Suspect]
     Active Substance: PANTOPRAZOLE SODIUM
     Indication: FOETAL EXPOSURE DURING PREGNANCY
     Dosage: FROM GESTATIONAL WEEK 0-14
     Route: 064
  14. DALTEPARIN SODIUM [Suspect]
     Active Substance: DALTEPARIN SODIUM
     Route: 064
  15. SALBUTAMOL SULFATE [Suspect]
     Active Substance: ALBUTEROL SULFATE
     Route: 065
  16. EZETIMIBE. [Suspect]
     Active Substance: EZETIMIBE
     Route: 064
  17. SIMVASTATIN. [Suspect]
     Active Substance: SIMVASTATIN
     Route: 064
  18. TACROLIMUS. [Suspect]
     Active Substance: TACROLIMUS
     Route: 064
  19. RAMIPRIL. [Suspect]
     Active Substance: RAMIPRIL
     Indication: FOETAL EXPOSURE DURING PREGNANCY
     Dosage: MOTHER DOSE: 20 MG PER DAY
     Route: 064
  20. SIMVASTATIN. [Suspect]
     Active Substance: SIMVASTATIN
     Indication: FOETAL EXPOSURE DURING PREGNANCY
     Dosage: FROM GESTATIONAL WEEK 0-14
     Route: 064
  21. TACROLIMUS. [Suspect]
     Active Substance: TACROLIMUS
     Indication: FOETAL EXPOSURE DURING PREGNANCY
     Dosage: FROM GESTATIONAL WEEK 0-14
     Route: 064
  22. PREDNISOLONE TABLET [Suspect]
     Active Substance: PREDNISOLONE
     Route: 064
  23. CLEXANE [Suspect]
     Active Substance: ENOXAPARIN SODIUM
     Route: 064
  24. SALBUTAMOL SULFATE [Suspect]
     Active Substance: ALBUTEROL SULFATE
     Indication: FOETAL EXPOSURE DURING PREGNANCY
     Route: 064
  25. EZETIMIBE. [Suspect]
     Active Substance: EZETIMIBE
     Indication: FOETAL EXPOSURE DURING PREGNANCY
     Dosage: FROM GESTATIONAL WEEK 0-14
     Route: 064
  26. PANTOPRAZOLE SODIUM. [Suspect]
     Active Substance: PANTOPRAZOLE SODIUM
     Route: 064
  27. METAMIZOLE SODIUM [Suspect]
     Active Substance: METAMIZOLE SODIUM
     Indication: FOETAL EXPOSURE DURING PREGNANCY
     Route: 064
  28. XARELTO [Suspect]
     Active Substance: RIVAROXABAN
     Indication: FOETAL EXPOSURE DURING PREGNANCY
     Dosage: FROM GESTATIONAL WEEK 0-14
     Route: 064

REACTIONS (8)
  - Congenital cardiovascular anomaly [Fatal]
  - Premature baby [Unknown]
  - Heart disease congenital [Fatal]
  - Cardiac septal defect [Fatal]
  - Foetal exposure during pregnancy [Fatal]
  - Low birth weight baby [Unknown]
  - Truncus arteriosus persistent [Fatal]
  - Ventricular septal defect [Fatal]
